FAERS Safety Report 9394021 (Version 1)
Quarter: 2013Q3

REPORT INFORMATION
  Report Type: Spontaneous
  Country: US (occurrence: US)
  Receive Date: 20130710
  Receipt Date: 20130710
  Transmission Date: 20140515
  Serious: Yes (Other)
  Sender: FDA-Public Use
  Company Number: US-ELI_LILLY_AND_COMPANY-US201307002275

PATIENT
  Sex: Female
  Weight: 43.54 kg

DRUGS (2)
  1. ADCIRCA [Suspect]
     Dosage: 10 MG, QD
     Route: 065
  2. TYVASO [Suspect]
     Indication: PULMONARY ARTERIAL HYPERTENSION
     Dosage: UNK, QID
     Dates: start: 20110503

REACTIONS (7)
  - Loss of consciousness [Unknown]
  - Concussion [Unknown]
  - Confusional state [Unknown]
  - Pain [Unknown]
  - Headache [Unknown]
  - Blood pressure abnormal [Unknown]
  - Dysphonia [Unknown]
